FAERS Safety Report 21822980 (Version 2)
Quarter: 2025Q1

REPORT INFORMATION
  Report Type: Spontaneous
  Country: US (occurrence: US)
  Receive Date: 20230105
  Receipt Date: 20250103
  Transmission Date: 20250408
  Serious: Yes (Hospitalization, Other)
  Sender: AMNEAL
  Company Number: US-AMNEAL PHARMACEUTICALS-2022-AMRX-00913

PATIENT
  Age: 45 Year
  Sex: Female
  Weight: 69.297 kg

DRUGS (8)
  1. ACTIVELLA [Suspect]
     Active Substance: ESTRADIOL\NORETHINDRONE ACETATE
     Indication: Uterine leiomyoma
     Route: 048
     Dates: start: 20191009, end: 20220224
  2. PLACEBO [Suspect]
     Active Substance: PLACEBO
     Indication: Uterine leiomyoma
     Route: 048
     Dates: start: 20181108, end: 20191009
  3. ELAGOLIX [Suspect]
     Active Substance: ELAGOLIX
     Indication: Uterine leiomyoma
     Dosage: 300 MILLIGRAM PM DOSE, DAILY
     Route: 048
     Dates: start: 20191009, end: 20220224
  4. ASCORBIC ACID\IRON [Concomitant]
     Active Substance: ASCORBIC ACID\IRON
     Indication: Anaemia
     Dosage: 1 TABLETS, DAILY
     Route: 048
     Dates: start: 2014
  5. SLOW IRON [Concomitant]
     Indication: Anaemia
     Dosage: 1 TABLETS, DAILY
     Route: 048
     Dates: start: 201810
  6. VITAMIN C [Concomitant]
     Active Substance: ASCORBIC ACID
     Indication: Anaemia
     Dosage: 1000 MILLIGRAM, DAILY
     Route: 048
     Dates: start: 201810
  7. VITAMIN B COMPLEX [Concomitant]
     Active Substance: CYANOCOBALAMIN\DEXPANTHENOL\NIACINAMIDE\PYRIDOXINE HYDROCHLORIDE\RIBOFLAVIN 5^-PHOSPHATE SODIUM\THIA
     Indication: Supplementation therapy
     Dosage: 1 TABLETS, DAILY
     Route: 048
     Dates: start: 20191221
  8. VITAMIN D NOS [Concomitant]
     Active Substance: CHOLECALCIFEROL\ERGOCALCIFEROL
     Indication: Supplementation therapy
     Dosage: 125 IU INTERNATIONAL UNIT(S), DAILY
     Route: 048
     Dates: start: 20210101

REACTIONS (1)
  - Acute myocardial infarction [Recovered/Resolved]

NARRATIVE: CASE EVENT DATE: 20220224
